FAERS Safety Report 7319618-1 (Version None)
Quarter: 2011Q1

REPORT INFORMATION
  Report Type: 
  Country: None (occurrence: None)
  Receive Date: 20110216
  Receipt Date: 20110131
  Transmission Date: 20110831
  Serious: Yes (Congenital Anomaly, Other)
  Sender: FDA-Public Use
  Company Number: 1000018765

PATIENT

DRUGS (3)
  1. ESCITALOPRAM OXALATE [Suspect]
     Dosage: TRANSPLACENTAL
     Route: 064
  2. VERSATIS (LIDOCAINE) (5 PERCENT) [Suspect]
     Dosage: 0.25 DOSAGE FORM (0.5 DOSAGE FORMS, 1 IN 2 D), TRANSPLACENTAL
     Route: 064
  3. ATARAX [Suspect]
     Dosage: 3.5714 MG (25 MG, 1 IN 1 WK), TRANSPLACENTAL
     Route: 064

REACTIONS (6)
  - TALIPES [None]
  - ABORTION INDUCED [None]
  - ARNOLD-CHIARI MALFORMATION [None]
  - FOETAL MALFORMATION [None]
  - SPINA BIFIDA [None]
  - MATERNAL DRUGS AFFECTING FOETUS [None]
